FAERS Safety Report 6232641-3 (Version None)
Quarter: 2009Q2

REPORT INFORMATION
  Report Type: 
  Country: None (occurrence: None)
  Receive Date: 20090615
  Receipt Date: 20090615
  Transmission Date: 20091009
  Serious: Yes (Hospitalization)
  Sender: FDA-Public Use
  Company Number: None

PATIENT
  Age: 80 Year
  Sex: Female
  Weight: 65.7716 kg

DRUGS (3)
  1. HEPARIN [Suspect]
     Indication: PULMONARY EMBOLISM
     Dosage: DOSE RANGED FROM 700-450 UNITS/HR W/ACCOMPANYING BOLUSES IV
     Route: 042
     Dates: start: 20090526, end: 20090601
  2. WARFARIN SODIUM [Suspect]
     Dosage: 5 MG PO
     Route: 048
     Dates: start: 20090527, end: 20090528
  3. ASPIRIN [Concomitant]

REACTIONS (1)
  - RETROPERITONEAL HAEMORRHAGE [None]
